FAERS Safety Report 21130014 (Version 1)
Quarter: 2022Q3

REPORT INFORMATION
  Report Type: Report from Study
  Country: CA (occurrence: CA)
  Receive Date: 20220726
  Receipt Date: 20220726
  Transmission Date: 20221027
  Serious: Yes (Other)
  Sender: FDA-Public Use
  Company Number: CA-JNJFOC-20200904065

PATIENT
  Sex: Female
  Weight: 60.7 kg

DRUGS (1)
  1. REMICADE [Suspect]
     Active Substance: INFLIXIMAB
     Indication: Crohn^s disease
     Dosage: ON 07-JAN-2021, THE PATIENT RECEIVED REMICADE DOSE. ON 24-FEB-2021, THE PATIENT HAD RECEIVED DOSE?TH
     Route: 041
     Dates: start: 20150910

REACTIONS (4)
  - Mineral supplementation [Unknown]
  - Urinary tract infection [Recovered/Resolved]
  - Exposure during pregnancy [Recovered/Resolved]
  - COVID-19 [Recovered/Resolved]

NARRATIVE: CASE EVENT DATE: 20200101
